FAERS Safety Report 5729362-X (Version None)
Quarter: 2008Q2

REPORT INFORMATION
  Report Type: 
  Country: None (occurrence: None)
  Receive Date: 20080501
  Receipt Date: 20080424
  Transmission Date: 20081010
  Serious: Yes (Hospitalization)
  Sender: FDA-Public Use
  Company Number: 2008-00424

PATIENT
  Age: 73 Year
  Sex: Male
  Weight: 61.2 kg

DRUGS (7)
  1. VELCADE [Suspect]
     Indication: MULTIPLE MYELOMA
     Dosage: IV BOLUS
     Route: 040
     Dates: start: 20080129
  2. REVLIMID [Concomitant]
  3. ACYCLOVIR [Concomitant]
  4. BACTRIM [Concomitant]
  5. PREDNISONE TAB [Concomitant]
  6. CIPRO [Concomitant]
  7. TOPROL-XL [Concomitant]

REACTIONS (3)
  - ANOREXIA [None]
  - LAZINESS [None]
  - LETHARGY [None]
